FAERS Safety Report 4443009-4 (Version None)
Quarter: 2004Q3

REPORT INFORMATION
  Report Type: 
  Country: None (occurrence: None)
  Receive Date: 20040908
  Receipt Date: 20040823
  Transmission Date: 20050211
  Serious: Yes (Hospitalization)
  Sender: FDA-Public Use
  Company Number: PHRM2004FR02639

PATIENT
  Age: 70 Year
  Sex: Female
  Weight: 51 kg

DRUGS (4)
  1. LAMISIL [Suspect]
     Indication: NAIL TINEA
     Dosage: 250 MG, QD
     Route: 048
     Dates: start: 20040601, end: 20040701
  2. ASPIRIN [Concomitant]
     Route: 048
  3. DAFLON 500 [Concomitant]
     Route: 048
  4. VASTAREL [Concomitant]
     Route: 048

REACTIONS (12)
  - ANOREXIA [None]
  - ASTHENIA [None]
  - BLOOD ALKALINE PHOSPHATASE INCREASED [None]
  - BLOOD BILIRUBIN INCREASED [None]
  - C-REACTIVE PROTEIN INCREASED [None]
  - CHOLESTASIS [None]
  - CYTOLYTIC HEPATITIS [None]
  - GAMMA-GLUTAMYLTRANSFERASE INCREASED [None]
  - GENERAL PHYSICAL CONDITION ABNORMAL [None]
  - MYALGIA [None]
  - RED BLOOD CELL SEDIMENTATION RATE INCREASED [None]
  - TRANSAMINASES INCREASED [None]
